FAERS Safety Report 13552784 (Version 1)
Quarter: 2017Q2

REPORT INFORMATION
  Report Type: Spontaneous
  Country: US (occurrence: US)
  Receive Date: 20170517
  Receipt Date: 20170517
  Transmission Date: 20170830
  Serious: Yes (Hospitalization, Other)
  Sender: FDA-Public Use
  Company Number: US-CIPLA LTD.-2017US08327

PATIENT

DRUGS (10)
  1. AMPICILLIN [Suspect]
     Active Substance: AMPICILLIN
     Indication: BETA HAEMOLYTIC STREPTOCOCCAL INFECTION
     Dosage: 2 G, EVERY 6 HOURS
     Route: 042
  2. CEFTOLOZANE/TAZOBACTAM [Suspect]
     Active Substance: CEFTOLOZANE SULFATE\TAZOBACTAM SODIUM
     Indication: OSTEOMYELITIS BACTERIAL
     Dosage: 1.5 G, EVERY 8 HOURS
     Route: 042
  3. CEFTRIAXONE. [Suspect]
     Active Substance: CEFTRIAXONE
     Indication: EVIDENCE BASED TREATMENT
     Dosage: 1 G, DAILY
     Route: 042
  4. LEVOFLOXACIN. [Suspect]
     Active Substance: LEVOFLOXACIN
     Indication: URINARY TRACT INFECTION
     Dosage: UNK
     Route: 065
  5. VANCOMYCIN [Suspect]
     Active Substance: VANCOMYCIN
     Indication: OSTEOMYELITIS BACTERIAL
     Dosage: UNK, ADJUSTED TO TROUGH LEVELS BETWEEN 15 AND 20 MG/ML
     Route: 065
  6. CEFDINIR. [Suspect]
     Active Substance: CEFDINIR
     Indication: EVIDENCE BASED TREATMENT
     Dosage: 300 MG, BID
     Route: 048
  7. DAPTOMYCIN. [Suspect]
     Active Substance: DAPTOMYCIN
     Indication: BETA HAEMOLYTIC STREPTOCOCCAL INFECTION
     Dosage: UNK
     Route: 065
  8. VANCOMYCIN [Suspect]
     Active Substance: VANCOMYCIN
     Indication: CLOSTRIDIUM DIFFICILE COLITIS
     Dosage: UNK
     Route: 048
  9. AZTREONAM. [Suspect]
     Active Substance: AZTREONAM
     Indication: URINARY TRACT INFECTION
     Dosage: 2 G, EVERY 2 HOURS FOR 12 WEEKS
     Route: 042
  10. GENTAMICIN. [Suspect]
     Active Substance: GENTAMICIN
     Indication: URINARY TRACT INFECTION
     Dosage: 80 MG,BID FOR 7 DAYS
     Route: 042

REACTIONS (7)
  - Tubulointerstitial nephritis [Unknown]
  - Clostridium difficile colitis [Unknown]
  - Small intestinal obstruction [Recovered/Resolved]
  - Urinary tract infection [Unknown]
  - Drug resistance [Unknown]
  - Osteomyelitis bacterial [Recovered/Resolved]
  - Vesical fistula [Unknown]
